FAERS Safety Report 5604102-3 (Version None)
Quarter: 2008Q1

REPORT INFORMATION
  Report Type: 
  Country: None (occurrence: None)
  Receive Date: 20080123
  Receipt Date: 20080123
  Transmission Date: 20080703
  Serious: Yes (Other)
  Sender: FDA-Public Use
  Company Number: None

PATIENT
  Age: 66 Year
  Sex: Female
  Weight: 113.3993 kg

DRUGS (2)
  1. ZYVOX [Suspect]
     Indication: CATHETER SITE INFECTION
     Dates: start: 20070515, end: 20070530
  2. ZYVOX [Suspect]
     Indication: INFECTION
     Dates: start: 20070515, end: 20070530

REACTIONS (8)
  - ARTHRALGIA [None]
  - ASTHENIA [None]
  - CHEST PAIN [None]
  - DIZZINESS [None]
  - HOT FLUSH [None]
  - MALAISE [None]
  - PALPITATIONS [None]
  - PRESYNCOPE [None]
